FAERS Safety Report 9010417 (Version 1)
Quarter: 2013Q1

REPORT INFORMATION
  Report Type: Spontaneous
  Country: US (occurrence: US)
  Receive Date: 20130109
  Receipt Date: 20130109
  Transmission Date: 20140127
  Serious: Yes (Hospitalization)
  Sender: FDA-Public Use
  Company Number: US-BAYER-2013-002651

PATIENT
  Age: 43 Year
  Sex: Female

DRUGS (1)
  1. MIRENA [Suspect]
     Indication: ENDOMETRIAL HYPERTROPHY
     Dosage: 20 MCG/24HR, CONT
     Route: 015
     Dates: start: 20130104, end: 20130106

REACTIONS (2)
  - Device expulsion [None]
  - Off label use [None]
